FAERS Safety Report 9323994 (Version 4)
Quarter: 2013Q3

REPORT INFORMATION
  Report Type: Report from Study
  Country: DE (occurrence: DE)
  Receive Date: 20130603
  Receipt Date: 20130722
  Transmission Date: 20140515
  Serious: Yes (Death, Life-Threatening)
  Sender: FDA-Public Use
  Company Number: DE-PFIZER INC-2013165079

PATIENT
  Age: 70 Year
  Sex: Male
  Weight: 82 kg

DRUGS (5)
  1. IDARUBICIN HCL [Suspect]
     Indication: ACUTE MYELOID LEUKAEMIA
     Dosage: 24 MG, UNK
     Dates: start: 20130513
  2. CYTARABINE [Suspect]
     Indication: ACUTE MYELOID LEUKAEMIA
     Dosage: 200 MG, UNK
     Dates: start: 20130513
  3. ETOPOSIDE [Suspect]
     Indication: ACUTE MYELOID LEUKAEMIA
     Dosage: 200 MG, UNK
     Dates: start: 20130513
  4. ATRA [Suspect]
     Indication: ACUTE MYELOID LEUKAEMIA
     Dosage: 90 MG, 1X/DAY
     Dates: start: 20130518, end: 20130520
  5. ATRA [Suspect]
     Dosage: 30 MG, 1X/DAY
     Dates: start: 20130521

REACTIONS (2)
  - Sepsis [Fatal]
  - Colitis [Not Recovered/Not Resolved]
